FAERS Safety Report 4463989-0 (Version None)
Quarter: 2004Q4

REPORT INFORMATION
  Report Type: 
  Country: None (occurrence: None)
  Receive Date: 20041001
  Receipt Date: 20040920
  Transmission Date: 20050328
  Serious: Yes (Hospitalization)
  Sender: FDA-Public Use
  Company Number: FR-JNJFOC-20030604065

PATIENT
  Sex: Female
  Weight: 53 kg

DRUGS (1)
  1. GALANTAMINE [Suspect]
     Route: 049
     Dates: start: 20030429, end: 20030622

REACTIONS (6)
  - APNOEA [None]
  - HYPOKALAEMIA [None]
  - HYPONATRAEMIA [None]
  - LOSS OF CONSCIOUSNESS [None]
  - PULSE ABSENT [None]
  - SYNCOPE [None]
